FAERS Safety Report 8978834 (Version 1)
Quarter: 2012Q4

REPORT INFORMATION
  Report Type: 
  Country: US (occurrence: US)
  Receive Date: 20121220
  Receipt Date: 20121220
  Transmission Date: 20130627
  Serious: No
  Sender: FDA-Public Use
  Company Number: US-PFIZER INC-2012318535

PATIENT
  Age: 61 Year
  Sex: Female
  Weight: 90.25 kg

DRUGS (2)
  1. CLEOCIN [Suspect]
     Indication: VAGINITIS
     Dosage: 100 mg, 1x/day
     Route: 067
     Dates: start: 20121211
  2. SYNTHROID [Concomitant]
     Dosage: UNK

REACTIONS (2)
  - Drug dose omission [Unknown]
  - Product quality issue [Unknown]
